FAERS Safety Report 20149794 (Version 3)
Quarter: 2022Q1

REPORT INFORMATION
  Report Type: Spontaneous
  Country: NL (occurrence: NL)
  Receive Date: 20211206
  Receipt Date: 20220119
  Transmission Date: 20220424
  Serious: Yes (Life-Threatening, Hospitalization, Other)
  Sender: FDA-Public Use
  Company Number: NL-CELLTRION INC.-2021NL016296

PATIENT

DRUGS (6)
  1. RITUXIMAB [Suspect]
     Active Substance: RITUXIMAB
     Indication: B-cell small lymphocytic lymphoma
     Dosage: UNK
     Route: 041
  2. RITUXIMAB [Suspect]
     Active Substance: RITUXIMAB
     Dosage: EIGHT COURSES OF R-CVP REGIMEN (ADDITIONAL INFO: ADDITIONAL INFO: TREATMENT COMPLETED)
     Route: 065
     Dates: start: 201708
  3. VALPROIC ACID [Suspect]
     Active Substance: VALPROIC ACID
     Indication: Epilepsy
     Route: 065
  4. CYCLOPHOSPHAMIDE [Suspect]
     Active Substance: CYCLOPHOSPHAMIDE
     Indication: B-cell small lymphocytic lymphoma
     Dosage: EIGHT COURSES OF R-CVP REGIMEN (ADDITIONAL INFO: ADDITIONAL INFO: TREATMENT COMPLETED)
     Route: 065
     Dates: start: 201708
  5. PREDNISONE [Suspect]
     Active Substance: PREDNISONE
     Indication: B-cell small lymphocytic lymphoma
     Dosage: EIGHT COURSES OF R-CVP REGIMEN (ADDITIONAL INFO: ADDITIONAL INFO: TREATMENT COMPLETED)
     Route: 065
     Dates: start: 201708
  6. VINCRISTINE [Suspect]
     Active Substance: VINCRISTINE
     Indication: B-cell small lymphocytic lymphoma
     Dosage: EIGHT COURSES OF R-CVP REGIMEN (ADDITIONAL INFO: ADDITIONAL INFO: TREATMENT COMPLETED)
     Route: 065
     Dates: start: 201708

REACTIONS (5)
  - Febrile neutropenia [Recovered/Resolved]
  - Post-acute COVID-19 syndrome [Recovered/Resolved]
  - Respiratory failure [Recovered/Resolved]
  - Normocytic anaemia [Unknown]
  - Thrombocytopenia [Unknown]
